FAERS Safety Report 9129682 (Version 2)
Quarter: 2013Q1

REPORT INFORMATION
  Report Type: Spontaneous
  Country: JP (occurrence: JP)
  Receive Date: 20130125
  Receipt Date: 20130306
  Transmission Date: 20140127
  Serious: Yes (Hospitalization)
  Sender: FDA-Public Use
  Company Number: JP-EISAI INC-E2090-02486-SPO-JP

PATIENT
  Age: 85 Year
  Sex: Female

DRUGS (15)
  1. EXCEGRAN [Suspect]
     Indication: EPILEPSY
     Route: 048
     Dates: start: 20120423, end: 20120531
  2. RIMATIL [Suspect]
     Indication: RHEUMATOID ARTHRITIS
     Route: 048
     Dates: start: 20120303, end: 20120531
  3. PROGRAF [Suspect]
     Indication: RHEUMATOID ARTHRITIS
     Route: 048
     Dates: start: 20120303, end: 20120531
  4. LOXONIN [Suspect]
     Indication: RHEUMATOID ARTHRITIS
     Route: 048
     Dates: start: 20120303, end: 20120531
  5. PREDONINE [Concomitant]
     Indication: RHEUMATOID ARTHRITIS
     Route: 048
     Dates: start: 20120303, end: 20120531
  6. PREDONINE [Concomitant]
     Route: 048
     Dates: start: 20120605, end: 20120610
  7. FAMOTIDINE [Concomitant]
     Indication: GASTRITIS
     Route: 048
     Dates: start: 20120303, end: 20120531
  8. TULOBUTEROL [Concomitant]
     Indication: ATYPICAL MYCOBACTERIAL INFECTION
     Route: 048
     Dates: start: 20120303, end: 20120531
  9. ALEVIATIN [Concomitant]
     Indication: EPILEPSY
     Route: 048
     Dates: start: 20120308, end: 20120310
  10. ALEVIATIN [Concomitant]
     Route: 048
     Dates: start: 20120412, end: 20120419
  11. VALERIN [Concomitant]
     Indication: EPILEPSY
     Route: 048
     Dates: start: 20120310, end: 20120312
  12. DEPAKENE [Concomitant]
     Indication: EPILEPSY
     Route: 048
     Dates: start: 20120312, end: 20120412
  13. UBRETID [Concomitant]
     Indication: NEUROGENIC BLADDER
     Route: 048
     Dates: start: 20120408, end: 20120412
  14. TEGRETOL [Concomitant]
     Indication: EPILEPSY
     Route: 048
     Dates: start: 20120409, end: 20120412
  15. MIYA-BM [Concomitant]
     Indication: DIARRHOEA
     Route: 048
     Dates: start: 20120421, end: 20120521

REACTIONS (1)
  - Stevens-Johnson syndrome [Recovered/Resolved]
